FAERS Safety Report 9618954 (Version 4)
Quarter: 2014Q2

REPORT INFORMATION
  Report Type: Spontaneous
  Country: US (occurrence: US)
  Receive Date: 20131014
  Receipt Date: 20140418
  Transmission Date: 20141212
  Serious: No
  Sender: FDA-Public Use
  Company Number: US-PFIZER INC-2013291780

PATIENT
  Age: 71 Year
  Sex: Male

DRUGS (3)
  1. XALKORI [Suspect]
     Indication: LUNG NEOPLASM MALIGNANT
     Dosage: 250 MG, 2X/DAY (1 CAPSULE TWICE DAILY)
     Route: 048
     Dates: start: 20130913
  2. XALKORI [Suspect]
     Dosage: 250 MG, 2X/DAY (1 CAPSULE TWICE DAILY)
     Dates: start: 20130921
  3. SONATA [Concomitant]
     Indication: INSOMNIA

REACTIONS (2)
  - Pleural effusion [Not Recovered/Not Resolved]
  - Deep vein thrombosis [Recovering/Resolving]
